FAERS Safety Report 6072293-9 (Version None)
Quarter: 2009Q1

REPORT INFORMATION
  Report Type: 
  Country: None (occurrence: None)
  Receive Date: 20090206
  Receipt Date: 20090206
  Transmission Date: 20090719
  Serious: Yes (Other)
  Sender: FDA-Public Use
  Company Number: None

PATIENT
  Age: 40 Year
  Sex: Female
  Weight: 151.955 kg

DRUGS (3)
  1. ZOLOFT [Suspect]
     Indication: DEPRESSION
     Dosage: 100MG 2 PER DAY PO
     Route: 048
     Dates: start: 20000801, end: 20090130
  2. ZOLOFT [Suspect]
     Indication: POST-TRAUMATIC STRESS DISORDER
     Dosage: 100MG 2 PER DAY PO
     Route: 048
     Dates: start: 20000801, end: 20090130
  3. ABILIFY [Concomitant]

REACTIONS (7)
  - DISTURBANCE IN ATTENTION [None]
  - DIZZINESS [None]
  - FEELING ABNORMAL [None]
  - MIGRAINE [None]
  - POISONING [None]
  - PSYCHOMOTOR SKILLS IMPAIRED [None]
  - VOMITING [None]
